FAERS Safety Report 15119893 (Version 1)
Quarter: 2018Q3

REPORT INFORMATION
  Report Type: Spontaneous
  Country: US (occurrence: US)
  Receive Date: 20180613
  Receipt Date: 20180613
  Transmission Date: 20181010
  Serious: Yes (Disabling, Other)
  Sender: FDA-Public Use
  Company Number: None

PATIENT
  Sex: Male
  Weight: 66.6 kg

DRUGS (13)
  1. TIVICAY [Concomitant]
     Active Substance: DOLUTEGRAVIR SODIUM
  2. CARVEDILOL (GENERIC COREG) [Concomitant]
  3. DIAZEPAM (GENERIC VALIUM) [Concomitant]
  4. PREVACID SOLUTAB [Concomitant]
     Active Substance: LANSOPRAZOLE
  5. VIRADAY TABLETS [Suspect]
     Active Substance: EFAVIRENZ\EMTRICITABINE\TENOFOVIR DISOPROXIL FUMARATE
     Indication: HIV INFECTION
     Dosage: ?          QUANTITY:1 DF DOSAGE FORM;?
     Route: 048
     Dates: start: 20171217, end: 20180327
  6. FLUTICASONE PROPIONATE NASAL SPRAY [Concomitant]
     Active Substance: FLUTICASONE PROPIONATE
  7. IBANDRONATE (GENERIC BONIVA) [Concomitant]
  8. VOLTAREN [Concomitant]
     Active Substance: DICLOFENAC SODIUM
  9. ODEFSEY [Concomitant]
     Active Substance: EMTRICITABINE\RILPIVIRINE HYDROCHLORIDE\TENOFOVIR ALAFENAMIDE FUMARATE
  10. PRAVASTATIN. [Concomitant]
     Active Substance: PRAVASTATIN
  11. ZOLPIDEM (GENERIC AMBIEN) [Concomitant]
  12. CELECOXIB. [Concomitant]
     Active Substance: CELECOXIB
  13. CLOPIDOGREL (GENERIC PLAVIX) [Concomitant]

REACTIONS (2)
  - Drug ineffective [None]
  - Product substitution issue [None]
